FAERS Safety Report 14303660 (Version 1)
Quarter: 2017Q4

REPORT INFORMATION
  Report Type: Spontaneous
  Country: FR (occurrence: FR)
  Receive Date: 20171219
  Receipt Date: 20171219
  Transmission Date: 20180321
  Serious: Yes (Hospitalization, Other)
  Sender: FDA-Public Use
  Company Number: FR-OTSUKA-2017_015160

PATIENT
  Age: 25 Year
  Sex: Male
  Weight: 130 kg

DRUGS (5)
  1. ABILIFY [Suspect]
     Active Substance: ARIPIPRAZOLE
     Indication: BIPOLAR DISORDER
     Dosage: 30 MG, QD
     Route: 048
     Dates: start: 201611
  2. ABILIFY MAINTENA [Suspect]
     Active Substance: ARIPIPRAZOLE
     Indication: BIPOLAR DISORDER
     Dosage: 400 MG, QMO
     Route: 030
     Dates: start: 20170609, end: 20170623
  3. NOZINAN [Concomitant]
     Active Substance: LEVOMEPROMAZINE
     Indication: ANXIETY
     Dosage: 15 MG, QD
     Route: 048
  4. NOZINAN [Concomitant]
     Active Substance: LEVOMEPROMAZINE
     Indication: INSOMNIA
  5. SERESTA [Concomitant]
     Active Substance: OXAZEPAM
     Indication: ANXIETY
     Dosage: 100 MG, QD
     Route: 048

REACTIONS (3)
  - Fall [Recovered/Resolved]
  - Hospitalisation [Unknown]
  - Dizziness [Recovered/Resolved]

NARRATIVE: CASE EVENT DATE: 201705
